FAERS Safety Report 15926028 (Version 2)
Quarter: 2019Q1

REPORT INFORMATION
  Report Type: Spontaneous
  Country: US (occurrence: US)
  Receive Date: 20190205
  Receipt Date: 20190219
  Transmission Date: 20190417
  Serious: No
  Sender: FDA-Public Use
  Company Number: US-ALLERGAN-1842169US

PATIENT
  Sex: Female

DRUGS (2)
  1. BOTOX COSMETIC [Suspect]
     Active Substance: ONABOTULINUMTOXINA
     Dosage: ACTUAL: INJECTION SITE A; 6 UNITS, B; 10 UNITS AND C; 16 UNITS
     Route: 030
     Dates: start: 20180813, end: 20180813
  2. BOTOX COSMETIC [Suspect]
     Active Substance: ONABOTULINUMTOXINA
     Indication: SKIN WRINKLING
     Dosage: ACTUAL: INJECTION SITE A; 6 UNITS, B; 10 UNITS AND C; 16 UNITS
     Route: 030
     Dates: start: 20180827, end: 20180827

REACTIONS (1)
  - Drug ineffective [Unknown]
